FAERS Safety Report 9892254 (Version 1)
Quarter: 2014Q1

REPORT INFORMATION
  Report Type: Spontaneous
  Country: US (occurrence: US)
  Receive Date: 20140212
  Receipt Date: 20140212
  Transmission Date: 20141002
  Serious: Yes (Other)
  Sender: FDA-Public Use
  Company Number: CHPA2014US002226

PATIENT
  Age: 76 Year
  Sex: Female

DRUGS (6)
  1. VOLTAREN GEL [Suspect]
     Indication: ARTHRITIS
     Dosage: 2 G, QD
     Route: 061
  2. VOLTAREN GEL [Suspect]
     Dosage: PROBABLY HAD USED 2 1/2 GRAMS
     Route: 061
  3. VICODIN [Concomitant]
     Indication: PAIN
     Route: 065
  4. LEVOTHYROXINE [Concomitant]
     Indication: THYROID DISORDER
     Route: 065
  5. FUROSEMIDE [Concomitant]
     Route: 065
  6. CORTISONE [Concomitant]
     Indication: PAIN
     Route: 065

REACTIONS (5)
  - Pain in extremity [Recovered/Resolved]
  - Concomitant disease aggravated [Recovered/Resolved]
  - Underdose [Unknown]
  - Wrong technique in drug usage process [Unknown]
  - Drug administered at inappropriate site [Unknown]
